FAERS Safety Report 24097602 (Version 2)
Quarter: 2024Q3

REPORT INFORMATION
  Report Type: Report from Study
  Country: CA (occurrence: None)
  Receive Date: 20240716
  Receipt Date: 20240718
  Transmission Date: 20241017
  Serious: Yes (Other)
  Sender: ASTRAZENECA
  Company Number: 2020SE58715

PATIENT
  Sex: Male

DRUGS (5)
  1. IMFINZI [Suspect]
     Active Substance: DURVALUMAB
     Indication: Non-small cell lung cancer stage IIIB
     Route: 042
     Dates: start: 20191121, end: 202002
  2. GABAPENTIN [Concomitant]
     Active Substance: GABAPENTIN
  3. MAGNESIUM [Concomitant]
     Active Substance: MAGNESIUM
  4. MIDODRINE [Concomitant]
     Active Substance: MIDODRINE
  5. ZOPICLONE [Concomitant]
     Active Substance: ZOPICLONE

REACTIONS (1)
  - Toxicity to various agents [Unknown]
